FAERS Safety Report 6939107-3 (Version None)
Quarter: 2010Q3

REPORT INFORMATION
  Report Type: 
  Country: None (occurrence: None)
  Receive Date: 20100824
  Receipt Date: 20100812
  Transmission Date: 20110219
  Serious: Yes (Other)
  Sender: FDA-Public Use
  Company Number: US-PFIZER INC-2010046778

PATIENT
  Sex: Female
  Weight: 68.02 kg

DRUGS (12)
  1. LYRICA [Suspect]
     Indication: FIBROMYALGIA
     Dosage: UNK
     Route: 048
     Dates: start: 20080101
  2. LYRICA [Suspect]
     Dosage: 300 MG, DAILY
     Route: 048
  3. CYMBALTA [Concomitant]
     Indication: DEPRESSION
     Dosage: 40 MG, DAILY
     Route: 048
  4. CYMBALTA [Concomitant]
     Indication: FIBROMYALGIA
  5. WELLBUTRIN [Concomitant]
     Dosage: UNK
  6. LAMICTAL [Concomitant]
     Dosage: UNK
  7. STRATTERA [Concomitant]
     Indication: ATTENTION DEFICIT/HYPERACTIVITY DISORDER
     Dosage: 80 MG, 1X/DAY
     Route: 048
  8. IBUPROFEN [Concomitant]
     Indication: SINUS HEADACHE
     Dosage: 1200 MG, AS NEEDED
     Route: 048
  9. VITAMIN B COMPLEX CAP [Concomitant]
     Dosage: UNK
  10. OMEGA-3 TRIGLYCERIDES [Concomitant]
     Dosage: UNK
  11. VITAMIN D [Concomitant]
     Dosage: UNK
  12. CALCIUM [Concomitant]
     Dosage: UNK

REACTIONS (7)
  - NODULE ON EXTREMITY [None]
  - OEDEMA PERIPHERAL [None]
  - PRURITUS [None]
  - RASH [None]
  - RASH PUSTULAR [None]
  - SWELLING FACE [None]
  - SWOLLEN TONGUE [None]
